FAERS Safety Report 6306473-1 (Version None)
Quarter: 2009Q3

REPORT INFORMATION
  Report Type: 
  Country: None (occurrence: None)
  Receive Date: 20090812
  Receipt Date: 20090807
  Transmission Date: 20100115
  Serious: Yes (Death)
  Sender: FDA-Public Use
  Company Number: US-WYE-H10520109

PATIENT

DRUGS (2)
  1. PRISTIQ [Suspect]
     Dosage: UNKNOWN
  2. EFFEXOR XR [Suspect]
     Dosage: UNKNOWN

REACTIONS (1)
  - DEATH [None]
